FAERS Safety Report 16633794 (Version 1)
Quarter: 2019Q3

REPORT INFORMATION
  Report Type: Spontaneous
  Country: US (occurrence: US)
  Receive Date: 20190725
  Receipt Date: 20190725
  Transmission Date: 20191004
  Serious: Yes (Other)
  Sender: FDA-Public Use
  Company Number: PHHY2019US167810

PATIENT
  Age: 12 Year
  Sex: Male

DRUGS (2)
  1. FLUOXETINE [Suspect]
     Active Substance: FLUOXETINE HYDROCHLORIDE
     Indication: OBSESSIVE-COMPULSIVE DISORDER
     Dosage: 5 MG, QD
     Route: 065
  2. METHYLPHENIDATE HYDROCHLORIDE. [Suspect]
     Active Substance: METHYLPHENIDATE HYDROCHLORIDE
     Indication: ATTENTION DEFICIT/HYPERACTIVITY DISORDER
     Route: 065

REACTIONS (12)
  - Hallucination, auditory [Unknown]
  - Irritability [Unknown]
  - Abnormal behaviour [Unknown]
  - Treatment failure [Unknown]
  - Suicidal ideation [Unknown]
  - Sleep disorder [Unknown]
  - Tachycardia [Unknown]
  - Tic [Unknown]
  - Agitation [Unknown]
  - Restlessness [Unknown]
  - Anxiety [Unknown]
  - Tachyphrenia [Unknown]
